FAERS Safety Report 23970061 (Version 1)
Quarter: 2024Q2

REPORT INFORMATION
  Report Type: Report from Study
  Country: JP (occurrence: JP)
  Receive Date: 20240613
  Receipt Date: 20240613
  Transmission Date: 20240716
  Serious: Yes (Other)
  Sender: FDA-Public Use
  Company Number: JP-RECORDATI RARE DISEASE INC.-2024004307

PATIENT

DRUGS (6)
  1. NEOPROFEN [Suspect]
     Active Substance: IBUPROFEN LYSINE
     Indication: Patent ductus arteriosus
     Dosage: 10 MILLIGRAM/KG
     Route: 042
     Dates: start: 20230421, end: 20230421
  2. NEOPROFEN [Suspect]
     Active Substance: IBUPROFEN LYSINE
     Dosage: 5 MILLIGRAM/KG
     Route: 042
     Dates: start: 20230422, end: 20230422
  3. NEOPROFEN [Suspect]
     Active Substance: IBUPROFEN LYSINE
     Dosage: 10 MILLIGRAM/KG
     Route: 042
     Dates: start: 20230508, end: 20230508
  4. NEOPROFEN [Suspect]
     Active Substance: IBUPROFEN LYSINE
     Dosage: 10 MILLIGRAM/KG
     Route: 042
     Dates: start: 20230516, end: 20230516
  5. NEOPROFEN [Suspect]
     Active Substance: IBUPROFEN LYSINE
     Dosage: 5 MILLIGRAM/KG
     Route: 042
     Dates: start: 20230517, end: 20230517
  6. NEOPROFEN [Suspect]
     Active Substance: IBUPROFEN LYSINE
     Dosage: 5 MILLIGRAM/KG
     Route: 042
     Dates: start: 20230518, end: 20230518

REACTIONS (3)
  - Circulatory failure neonatal [Recovering/Resolving]
  - Dyspepsia [Recovering/Resolving]
  - Urine output decreased [Recovering/Resolving]

NARRATIVE: CASE EVENT DATE: 20230422
